FAERS Safety Report 15228376 (Version 1)
Quarter: 2018Q3

REPORT INFORMATION
  Report Type: Spontaneous
  Country: US (occurrence: US)
  Receive Date: 20180731
  Receipt Date: 20180731
  Transmission Date: 20181010
  Serious: No
  Sender: FDA-Public Use
  Company Number: None

PATIENT
  Age: 27 Year
  Sex: Female
  Weight: 53.52 kg

DRUGS (3)
  1. PARAGARD T 380A [Suspect]
     Active Substance: COPPER
     Dates: start: 20170612, end: 20180612
  2. MULTI VITAMIN [Concomitant]
     Active Substance: VITAMINS
  3. LOLO ESTRIN FE [Concomitant]

REACTIONS (2)
  - Device expulsion [None]
  - Device dislocation [None]

NARRATIVE: CASE EVENT DATE: 20180611
